FAERS Safety Report 9244014 (Version 1)
Quarter: 2013Q1

REPORT INFORMATION
  Report Type: Spontaneous
  Country: US (occurrence: None)
  Receive Date: 20121123
  Receipt Date: 20121123
  Transmission Date: 20140127
  Serious: No
  Sender: FDA-Public Use
  Company Number: 357027

PATIENT
  Age: 37 Year
  Sex: Female
  Weight: 72.6 kg

DRUGS (3)
  1. VICTOZA [Suspect]
     Indication: DIABETES MELLITUS
     Route: 058
     Dates: start: 201008
  2. LANTUS (INSULIN GLARGINE) [Concomitant]
  3. MICROGESTIN FE (ETHINYLESTRADOIL, FERROUS FUMARATE, NORETHISERONE ACETATE) [Concomitant]

REACTIONS (1)
  - Pancreatitis [None]
